FAERS Safety Report 9325914 (Version 2)
Quarter: 2013Q2

REPORT INFORMATION
  Report Type: Report from Study
  Country: JP (occurrence: JP)
  Receive Date: 20130604
  Receipt Date: 20130617
  Transmission Date: 20140414
  Serious: Yes (Death)
  Sender: FDA-Public Use
  Company Number: JP-AMGEN-JPNCT2013039186

PATIENT
  Age: 76 Year
  Sex: Female
  Weight: 45 kg

DRUGS (21)
  1. DARBEPOETIN ALFA [Suspect]
     Indication: NEPHROGENIC ANAEMIA
     Dosage: 60 MUG, QD
     Route: 058
     Dates: start: 20110309, end: 20110309
  2. DARBEPOETIN ALFA [Suspect]
     Dosage: 60 MUG, QD
     Route: 058
     Dates: start: 20110511, end: 20110511
  3. DARBEPOETIN ALFA [Suspect]
     Dosage: 120 MUG, QD
     Route: 058
     Dates: start: 20110713, end: 20110713
  4. DARBEPOETIN ALFA [Suspect]
     Dosage: 60 MUG, QD
     Route: 058
     Dates: start: 20110914, end: 20110914
  5. DARBEPOETIN ALFA [Suspect]
     Dosage: 60 MUG, QD
     Route: 058
     Dates: start: 20120111, end: 20120111
  6. DARBEPOETIN ALFA [Suspect]
     Dosage: 60 MUG, QD
     Route: 058
     Dates: start: 20120502, end: 20120502
  7. DARBEPOETIN ALFA [Suspect]
     Dosage: 60 MUG, QD
     Route: 058
     Dates: start: 20120704, end: 20120704
  8. DARBEPOETIN ALFA [Suspect]
     Dosage: 60 MUG, QD
     Route: 058
     Dates: start: 20120905, end: 20120905
  9. DARBEPOETIN ALFA [Suspect]
     Dosage: 60 MUG, QD
     Route: 058
     Dates: start: 20121107, end: 20121107
  10. DARBEPOETIN ALFA [Suspect]
     Dosage: 60 MUG, QD
     Route: 058
     Dates: start: 20130109, end: 20130109
  11. DARBEPOETIN ALFA [Suspect]
     Dosage: 60 MUG, QD
     Route: 058
     Dates: start: 20130306, end: 20130306
  12. LASIX [Concomitant]
     Indication: NEPHROSCLEROSIS
     Dosage: UNK
     Route: 048
  13. ENALAPRIL [Concomitant]
     Indication: NEPHROSCLEROSIS
     Dosage: UNK
     Route: 048
  14. BAYASPIRIN [Concomitant]
     Dosage: UNK
     Route: 048
  15. OMEPRAZOLE [Concomitant]
     Dosage: UNK
     Route: 048
  16. GASMOTIN [Concomitant]
     Dosage: UNK
     Route: 048
  17. KALIMATE [Concomitant]
     Dosage: UNK
     Route: 048
  18. MAGNESIUM OXIDE [Concomitant]
     Dosage: UNK
     Route: 048
  19. BENIDIPINE HYDROCHLORIDE [Concomitant]
     Dosage: UNK
     Route: 048
  20. CILOSTATE [Concomitant]
     Dosage: UNK
     Route: 048
  21. ARGAMATE [Concomitant]
     Dosage: UNK
     Route: 048

REACTIONS (1)
  - Cerebral artery embolism [Fatal]
